FAERS Safety Report 9224929 (Version 1)
Quarter: 2013Q2

REPORT INFORMATION
  Report Type: Report from Study
  Country: US (occurrence: US)
  Receive Date: 20130411
  Receipt Date: 20130411
  Transmission Date: 20140414
  Serious: Yes (Other)
  Sender: FDA-Public Use
  Company Number: US-CELGENEUS-163-21880-13040029

PATIENT
  Age: 63 Year
  Sex: Male
  Weight: 91.2 kg

DRUGS (9)
  1. REVLIMID [Suspect]
     Indication: PLASMA CELL MYELOMA
     Dosage: 10 MILLIGRAM
     Route: 048
     Dates: start: 20060616, end: 20100224
  2. REVLIMID [Suspect]
     Dosage: 15 MILLIGRAM
     Route: 048
     Dates: start: 200609, end: 20100224
  3. THALOMID [Suspect]
     Indication: PLASMA CELL MYELOMA
     Route: 065
     Dates: start: 201110, end: 201111
  4. VELCADE [Concomitant]
     Indication: PLASMA CELL MYELOMA
     Route: 065
     Dates: start: 201110, end: 201111
  5. DEXAMETHASONE [Concomitant]
     Indication: PLASMA CELL MYELOMA
     Route: 065
     Dates: start: 201110, end: 201111
  6. CISPLATIN [Concomitant]
     Indication: PLASMA CELL MYELOMA
     Route: 065
     Dates: start: 201110, end: 201111
  7. ADRIAMYCIN [Concomitant]
     Indication: PLASMA CELL MYELOMA
     Route: 065
     Dates: start: 201110, end: 201111
  8. CYCLOPHOSPHAMIDE [Concomitant]
     Indication: PLASMA CELL MYELOMA
     Route: 065
     Dates: start: 201110, end: 201111
  9. ETOPOSIDE [Concomitant]
     Indication: PLASMA CELL MYELOMA
     Route: 065
     Dates: start: 201110, end: 201111

REACTIONS (2)
  - Prostate cancer [Not Recovered/Not Resolved]
  - Squamous cell carcinoma of skin [Not Recovered/Not Resolved]
